FAERS Safety Report 9315266 (Version 1)
Quarter: 2013Q2

REPORT INFORMATION
  Report Type: Report from Study
  Country: CA (occurrence: CA)
  Receive Date: 20130529
  Receipt Date: 20130529
  Transmission Date: 20140414
  Serious: Yes (Hospitalization)
  Sender: FDA-Public Use
  Company Number: CA-TEVA-408531USA

PATIENT
  Age: 59 Year
  Sex: Male
  Weight: 106.2 kg

DRUGS (18)
  1. TREANDA [Suspect]
     Indication: NON-HODGKIN^S LYMPHOMA UNSPECIFIED HISTOLOGY INDOLENT
     Route: 042
     Dates: start: 20120807, end: 20120808
  2. TREANDA [Suspect]
     Route: 042
     Dates: start: 20120905, end: 20120905
  3. FILGRASTIM [Concomitant]
     Indication: NEUTROPENIA
     Dosage: 300 MICROGRAM DAILY;
     Route: 058
     Dates: start: 20120911, end: 20120918
  4. SIMVASTATIN [Concomitant]
     Indication: HYPERCHOLESTEROLAEMIA
     Dosage: 20 MILLIGRAM DAILY;
     Route: 048
     Dates: start: 200209
  5. METFORMIN [Concomitant]
     Indication: DIABETES MELLITUS
     Dosage: 2000 MILLIGRAM DAILY;
     Route: 048
     Dates: start: 200209
  6. LISINOPRIL [Concomitant]
     Indication: HYPERTENSION
     Dosage: 10 MILLIGRAM DAILY;
     Route: 048
     Dates: start: 200209
  7. EZETIMIBE [Concomitant]
     Indication: HYPERCHOLESTEROLAEMIA
     Dosage: 10 MILLIGRAM DAILY;
     Route: 048
     Dates: start: 200209
  8. CIPRALEX [Concomitant]
     Indication: DEPRESSION
     Dosage: 20 MILLIGRAM DAILY;
     Route: 048
     Dates: start: 2008
  9. ALLOPURINOL [Concomitant]
     Indication: GOUTY ARTHRITIS
     Dosage: 200 MILLIGRAM DAILY;
     Route: 048
     Dates: start: 200209
  10. AAS [Concomitant]
     Indication: THROMBOSIS PROPHYLAXIS
     Dosage: 80 MILLIGRAM DAILY;
     Route: 048
     Dates: start: 200209
  11. ZOPICLONE [Concomitant]
     Indication: INSOMNIA
     Dosage: 5 MILLIGRAM DAILY;
     Route: 048
     Dates: start: 2011
  12. GLULISINE INSULIN [Concomitant]
     Indication: DIABETES MELLITUS
     Dosage: SLIDING SCALE
     Route: 058
     Dates: start: 2011
  13. GLARGINE INSULIN [Concomitant]
     Indication: DIABETES MELLITUS
     Dosage: 35 IU (INTERNATIONAL UNIT) DAILY;
     Route: 058
     Dates: start: 2007
  14. PANTOLOC [Concomitant]
     Indication: ABDOMINAL PAIN UPPER
     Dosage: 40 MILLIGRAM DAILY;
     Route: 048
     Dates: start: 20120809
  15. BACTRIM [Concomitant]
     Indication: INFECTION PROPHYLAXIS
     Dosage: TRIMETHOPRIM/SULFAMETHOXAZOLE 800 MG/160 MG TIW
     Route: 048
     Dates: start: 20120912
  16. HUMALOG [Concomitant]
     Indication: DIABETES MELLITUS
     Dosage: SLIDING SCALE
     Route: 058
  17. LANTUS [Concomitant]
     Indication: DIABETES MELLITUS
     Dosage: 50 IU (INTERNATIONAL UNIT) DAILY;
     Route: 058
  18. VALACYCLOVIR [Concomitant]
     Indication: ANTIVIRAL PROPHYLAXIS
     Dosage: 1000 MILLIGRAM DAILY;
     Route: 048
     Dates: start: 20110708

REACTIONS (1)
  - Pleural effusion [Recovered/Resolved]
